FAERS Safety Report 9792687 (Version 1)
Quarter: 2014Q1

REPORT INFORMATION
  Report Type: Spontaneous
  Country: US (occurrence: US)
  Receive Date: 20140102
  Receipt Date: 20140102
  Transmission Date: 20141002
  Serious: No
  Sender: FDA-Public Use
  Company Number: US-SA-2013SA104801

PATIENT
  Age: 49 Year
  Sex: Male

DRUGS (2)
  1. AUBAGIO [Suspect]
     Route: 065
  2. AMPYRA [Suspect]
     Indication: MULTIPLE SCLEROSIS
     Route: 065
     Dates: start: 2011

REACTIONS (3)
  - Nail discolouration [Unknown]
  - Onychomadesis [Unknown]
  - Diarrhoea [Unknown]
